FAERS Safety Report 16866546 (Version 1)
Quarter: 2019Q3

REPORT INFORMATION
  Report Type: Spontaneous
  Country: US (occurrence: US)
  Receive Date: 20190930
  Receipt Date: 20190930
  Transmission Date: 20191005
  Serious: No
  Sender: FDA-Public Use
  Company Number: US-ALLERGAN-1936648US

PATIENT
  Age: 42 Year
  Sex: Female

DRUGS (1)
  1. CARIPRAZINE HCL UNK [Suspect]
     Active Substance: CARIPRAZINE HYDROCHLORIDE
     Indication: BIPOLAR DISORDER
     Dosage: 1.5 MG
     Route: 065

REACTIONS (1)
  - Oedema peripheral [Unknown]
